FAERS Safety Report 14243814 (Version 1)
Quarter: 2017Q4

REPORT INFORMATION
  Report Type: Spontaneous
  Country: US (occurrence: US)
  Receive Date: 20171201
  Receipt Date: 20171201
  Transmission Date: 20180321
  Serious: Yes (Disabling, Other)
  Sender: FDA-Public Use
  Company Number: None

PATIENT
  Age: 39 Year
  Sex: Female
  Weight: 51.75 kg

DRUGS (6)
  1. LEXAPRO [Concomitant]
     Active Substance: ESCITALOPRAM OXALATE
  2. D MULTI VITAMIN [Concomitant]
  3. MOBIC [Suspect]
     Active Substance: MELOXICAM
  4. VITAMIN B12 [Concomitant]
     Active Substance: CYANOCOBALAMIN
  5. VIVLODEX [Suspect]
     Active Substance: MELOXICAM
  6. MELOXICAM. [Suspect]
     Active Substance: MELOXICAM
     Indication: PAIN
     Dosage: ?          QUANTITY:30 TABLET(S);?
     Route: 048
     Dates: start: 20171107, end: 20171114

REACTIONS (6)
  - Muscle spasms [None]
  - Burning sensation [None]
  - Myoclonus [None]
  - Muscle twitching [None]
  - Impaired quality of life [None]
  - Insomnia [None]

NARRATIVE: CASE EVENT DATE: 20171115
